FAERS Safety Report 14921800 (Version 1)
Quarter: 2018Q2

REPORT INFORMATION
  Report Type: Spontaneous
  Country: FR (occurrence: FR)
  Receive Date: 20180522
  Receipt Date: 20180522
  Transmission Date: 20180711
  Serious: Yes (Other)
  Sender: FDA-Public Use
  Company Number: FR-MERCK KGAA-2048198

PATIENT
  Sex: Female

DRUGS (1)
  1. NOVOTHYROX [Suspect]
     Active Substance: LEVOTHYROXINE SODIUM
     Indication: PRODUCT USED FOR UNKNOWN INDICATION

REACTIONS (24)
  - Back pain [None]
  - Fatigue [None]
  - Crying [None]
  - Abdominal pain [None]
  - Myalgia [None]
  - Malaise [None]
  - Decreased interest [None]
  - Anger [None]
  - Loss of personal independence in daily activities [None]
  - Nausea [None]
  - Irritability [None]
  - Personal relationship issue [None]
  - Suicidal ideation [None]
  - Feeling guilty [None]
  - Insomnia [None]
  - Muscular weakness [None]
  - Arthralgia [None]
  - Pain [None]
  - Headache [None]
  - Diarrhoea [None]
  - Antisocial behaviour [None]
  - Weight increased [None]
  - Depressed mood [None]
  - Vomiting [None]
